FAERS Safety Report 20101725 (Version 3)
Quarter: 2021Q4

REPORT INFORMATION
  Report Type: Spontaneous
  Country: GB (occurrence: GB)
  Receive Date: 20211123
  Receipt Date: 20211210
  Transmission Date: 20220303
  Serious: Yes (Death, Life-Threatening, Hospitalization, Other)
  Sender: FDA-Public Use
  Company Number: GB-MYLANLABS-2021M1085685

PATIENT
  Age: 65 Year
  Sex: Female

DRUGS (7)
  1. CLOZARIL [Suspect]
     Active Substance: CLOZAPINE
     Indication: Schizophrenia
     Dosage: 600 MILLIGRAM, QD
     Route: 048
     Dates: start: 20060726, end: 20211115
  2. ALLOPURINOL [Concomitant]
     Active Substance: ALLOPURINOL
     Indication: Gout
     Dosage: 100 MILLIGRAM, QD
     Route: 048
     Dates: start: 20150422
  3. ATORVASTATIN [Concomitant]
     Active Substance: ATORVASTATIN
     Dosage: 40 MILLIGRAM, QD
     Route: 048
     Dates: start: 20190911
  4. BETAHISTINE [Concomitant]
     Active Substance: BETAHISTINE
     Indication: Dizziness
     Dosage: 16 MILLIGRAM, QD
     Route: 048
     Dates: start: 20210615
  5. CODEINE [Concomitant]
     Active Substance: CODEINE
     Indication: Pain
     Dosage: UNK (30MG TO 60 MG QDS)
     Route: 048
     Dates: start: 20210528
  6. LANSOPRAZOLE [Concomitant]
     Active Substance: LANSOPRAZOLE
     Indication: Gastrooesophageal reflux disease
     Dosage: 15 MILLIGRAM, QD
     Route: 048
     Dates: start: 20200318
  7. RIVAROXABAN [Concomitant]
     Active Substance: RIVAROXABAN
     Dosage: 20 MILLIGRAM, QD
     Route: 048
     Dates: start: 20201014

REACTIONS (8)
  - Neoplasm malignant [Fatal]
  - Dysphagia [Not Recovered/Not Resolved]
  - Confusional state [Unknown]
  - Weight decreased [Unknown]
  - Hypophagia [Unknown]
  - General physical health deterioration [Unknown]
  - Oral candidiasis [Unknown]
  - Vomiting [Unknown]
